FAERS Safety Report 7924982-6 (Version None)
Quarter: 2011Q4

REPORT INFORMATION
  Report Type: 
  Country: None (occurrence: None)
  Receive Date: 20111118
  Receipt Date: 20110330
  Transmission Date: 20120403
  Serious: No
  Sender: FDA-Public Use
  Company Number: US-AMGEN-USASP2011016862

PATIENT
  Age: 46 Year
  Sex: Female

DRUGS (2)
  1. ENBREL [Suspect]
     Indication: PSORIATIC ARTHROPATHY
     Dates: start: 20090701, end: 20100901
  2. ENBREL [Suspect]
     Indication: PSORIASIS

REACTIONS (4)
  - COUGH [None]
  - PARANASAL SINUS HYPERSECRETION [None]
  - PSORIATIC ARTHROPATHY [None]
  - PSORIASIS [None]
